FAERS Safety Report 15706950 (Version 2)
Quarter: 2019Q1

REPORT INFORMATION
  Report Type: Spontaneous
  Country: JP (occurrence: JP)
  Receive Date: 20181210
  Receipt Date: 20190114
  Transmission Date: 20190417
  Serious: Yes (Death, Other)
  Sender: FDA-Public Use
  Company Number: JP-SEATTLE GENETICS-2018SGN02809

PATIENT
  Age: 78 Year
  Sex: Male
  Weight: 45 kg

DRUGS (8)
  1. DOXORUBICIN HYDROCHLORIDE. [Suspect]
     Active Substance: DOXORUBICIN HYDROCHLORIDE
     Indication: HODGKIN^S DISEASE
     Dosage: UNK
     Route: 041
     Dates: start: 20180913, end: 20180913
  2. DACARBAZINE. [Suspect]
     Active Substance: DACARBAZINE
     Indication: HODGKIN^S DISEASE
     Dosage: UNK
     Route: 041
     Dates: start: 20180913, end: 20180913
  3. ADCETRIS [Suspect]
     Active Substance: BRENTUXIMAB VEDOTIN
     Indication: HODGKIN^S DISEASE
     Dosage: 50 MG, UNK
     Route: 041
     Dates: start: 20180927, end: 20180927
  4. GRANISETRON HYDROCHLORIDE. [Concomitant]
     Active Substance: GRANISETRON HYDROCHLORIDE
     Dosage: 4 MG, QD
     Route: 041
     Dates: start: 20180927, end: 20180927
  5. DACARBAZINE. [Suspect]
     Active Substance: DACARBAZINE
     Dosage: 250 MG, UNK
     Route: 041
     Dates: start: 20180927, end: 20180927
  6. VINBLASTINE SULFATE. [Suspect]
     Active Substance: VINBLASTINE SULFATE
     Indication: HODGKIN^S DISEASE
     Dosage: UNK
     Route: 041
     Dates: start: 20180913, end: 20180913
  7. VINBLASTINE SULFATE. [Suspect]
     Active Substance: VINBLASTINE SULFATE
     Dosage: 7 MG, UNK
     Route: 041
     Dates: start: 20180927, end: 20180927
  8. DOXORUBICIN HYDROCHLORIDE. [Suspect]
     Active Substance: DOXORUBICIN HYDROCHLORIDE
     Dosage: 20 MG, UNK
     Route: 041
     Dates: start: 20180927, end: 20180927

REACTIONS (7)
  - Disseminated intravascular coagulation [Fatal]
  - Diarrhoea [Unknown]
  - Blood pressure decreased [Unknown]
  - Sepsis [Fatal]
  - White blood cell count decreased [Fatal]
  - Dehydration [Unknown]
  - Pyrexia [Unknown]

NARRATIVE: CASE EVENT DATE: 20181015
